FAERS Safety Report 16030168 (Version 2)
Quarter: 2019Q2

REPORT INFORMATION
  Report Type: Spontaneous
  Country: CH (occurrence: CH)
  Receive Date: 20190304
  Receipt Date: 20190401
  Transmission Date: 20190711
  Serious: Yes (Other)
  Sender: FDA-Public Use
  Company Number: CH-AMREGENT-20190352

PATIENT
  Sex: Female

DRUGS (1)
  1. FERINJECT [Suspect]
     Active Substance: FERRIC CARBOXYMALTOSE
     Dosage: 1000 MG, 1 TOTAL
     Route: 041
     Dates: start: 20190121, end: 20190121

REACTIONS (7)
  - Skin reaction [Unknown]
  - Lip oedema [Unknown]
  - Blood pressure decreased [Unknown]
  - Lip swelling [Unknown]
  - Dyspnoea [Unknown]
  - Exposure during pregnancy [Unknown]
  - Erythema [Unknown]

NARRATIVE: CASE EVENT DATE: 20190121
